FAERS Safety Report 5246283-X (Version None)
Quarter: 2007Q1

REPORT INFORMATION
  Report Type: 
  Country: None (occurrence: None)
  Receive Date: 20061201
  Receipt Date: 20060726
  Transmission Date: 20070707
  Serious: No
  Sender: FDA-Public Use
  Company Number: 2006PV018334

PATIENT
  Age: 67 Year
  Sex: Male

DRUGS (8)
  1. BYETTA [Suspect]
     Indication: DIABETES MELLITUS NON-INSULIN-DEPENDENT
     Dosage: SEE IMAGE
     Route: 058
     Dates: start: 20060101, end: 20060701
  2. BYETTA [Suspect]
     Indication: DIABETES MELLITUS NON-INSULIN-DEPENDENT
     Dosage: SEE IMAGE
     Route: 058
     Dates: start: 20060701
  3. METFORMIN [Concomitant]
  4. ACTOS [Concomitant]
  5. TRICOR [Concomitant]
  6. CENTRUM SILVER [Concomitant]
  7. SUPER B COMPLEX [Concomitant]
  8. ASPIRIN [Concomitant]

REACTIONS (2)
  - INJECTION SITE PAIN [None]
  - WEIGHT DECREASED [None]
